FAERS Safety Report 9297684 (Version 4)
Quarter: 2014Q4

REPORT INFORMATION
  Report Type: Report from Study
  Country: JP (occurrence: JP)
  Receive Date: 20130520
  Receipt Date: 20141129
  Transmission Date: 20150529
  Serious: Yes (Hospitalization, Other)
  Sender: FDA-Public Use
  Company Number: PHHY2012JP033538

PATIENT
  Age: 62 Year
  Sex: Male

DRUGS (43)
  1. CLOZARIL [Suspect]
     Active Substance: CLOZAPINE
     Dosage: 150 MG, UNK
     Route: 048
     Dates: start: 20110202, end: 20110204
  2. CLOZARIL [Suspect]
     Active Substance: CLOZAPINE
     Dosage: 400 MG, UNK
     Route: 048
     Dates: start: 20120530, end: 20120821
  3. AKINETON [Concomitant]
     Active Substance: BIPERIDEN HYDROCHLORIDE
     Indication: SCHIZOPHRENIA, DISORGANISED TYPE
     Dosage: 1 MG, UNK
     Route: 048
     Dates: start: 20110119
  4. CLOZARIL [Suspect]
     Active Substance: CLOZAPINE
     Dosage: 250 MG, UNK
     Route: 048
     Dates: start: 20110316, end: 20110322
  5. CLOZARIL [Suspect]
     Active Substance: CLOZAPINE
     Dosage: 375 MG, UNK
     Route: 048
     Dates: start: 20120822, end: 20120823
  6. THEO-DUR [Concomitant]
     Active Substance: THEOPHYLLINE ANHYDROUS
     Indication: ASTHMA
     Dosage: 400 MG, UNK
     Dates: start: 20110119
  7. OLANZAPINE. [Concomitant]
     Active Substance: OLANZAPINE
     Indication: PRODUCT USED FOR UNKNOWN INDICATION
     Dosage: 20 MG, QD
     Route: 065
  8. CLOZARIL [Suspect]
     Active Substance: CLOZAPINE
     Dosage: 100 MG, UNK
     Route: 048
     Dates: start: 20110128, end: 20110129
  9. CLOZARIL [Suspect]
     Active Substance: CLOZAPINE
     Dosage: 175 MG, UNK
     Route: 048
     Dates: start: 20110205, end: 20110207
  10. CLOZARIL [Suspect]
     Active Substance: CLOZAPINE
     Dosage: 200 MG, UNK
     Route: 048
     Dates: start: 20110228, end: 20110315
  11. FLUMEZIN [Concomitant]
     Dosage: 8 MG, UNK
     Route: 048
  12. ALLELOCK [Concomitant]
     Active Substance: OLOPATADINE HYDROCHLORIDE
     Indication: ASTHMA
     Dosage: 5 MG, UNK
     Route: 048
     Dates: start: 20110119
  13. CLOZARIL [Suspect]
     Active Substance: CLOZAPINE
     Dosage: 75 MG, UNK
     Route: 048
     Dates: start: 20110126, end: 20110127
  14. CLOZARIL [Suspect]
     Active Substance: CLOZAPINE
     Dosage: 450 MG, UNK
     Route: 048
     Dates: start: 20120229, end: 20120522
  15. FLUMEZIN [Concomitant]
     Indication: PRODUCT USED FOR UNKNOWN INDICATION
     Dosage: 12 MG, UNK
     Route: 048
     Dates: start: 20110119
  16. LIMAS [Concomitant]
     Active Substance: LITHIUM CARBONATE
     Dosage: 600 MG, UNK
     Route: 048
     Dates: end: 20120823
  17. ROZEREM [Concomitant]
     Active Substance: RAMELTEON
     Dosage: 8 MG, UNK
     Route: 048
  18. SULTIMIN [Concomitant]
     Indication: ASTHMA
     Dosage: 5 MG, UNK
     Route: 048
     Dates: start: 20110119
  19. LIMAS [Concomitant]
     Active Substance: LITHIUM CARBONATE
     Indication: PROPHYLAXIS
     Dosage: 600 MG, UNK
     Route: 048
     Dates: start: 20110119
  20. MEPTIN [Concomitant]
     Active Substance: PROCATEROL HYDROCHLORIDE
     Indication: ASTHMA
     Dosage: 100 UG, UNK
     Route: 048
     Dates: start: 20110119
  21. HARNAL [Concomitant]
     Active Substance: TAMSULOSIN HYDROCHLORIDE
     Indication: PRODUCT USED FOR UNKNOWN INDICATION
     Dosage: 0.2 MG, UNK
     Route: 048
     Dates: start: 20110119
  22. PANTOSIN [Concomitant]
     Active Substance: PANTETHINE
     Indication: PRODUCT USED FOR UNKNOWN INDICATION
     Dosage: 450 MG, UNK
     Route: 048
     Dates: start: 20110318
  23. PANTOSIN [Concomitant]
     Active Substance: PANTETHINE
     Dosage: 600 MG, UNK
     Route: 048
  24. CLOZARIL [Suspect]
     Active Substance: CLOZAPINE
     Dosage: 25 MG, UNK
     Route: 048
     Dates: start: 20110120, end: 20110122
  25. CLOZARIL [Suspect]
     Active Substance: CLOZAPINE
     Dosage: 125 MG, UNK
     Route: 048
     Dates: start: 20110130, end: 20110201
  26. CLOZARIL [Suspect]
     Active Substance: CLOZAPINE
     Dosage: 425 MG, UNK
     Route: 048
     Dates: start: 20120222, end: 20120228
  27. FLUMEZIN [Concomitant]
     Dosage: 4 MG, UNK
     Route: 048
     Dates: end: 20110208
  28. ONON [Concomitant]
     Active Substance: PRANLUKAST
     Indication: ASTHMA
     Dosage: 337.5 MG, UNK
     Route: 048
     Dates: start: 20110119
  29. CLOZARIL [Suspect]
     Active Substance: CLOZAPINE
     Dosage: 400 MG, UNK
     Route: 048
     Dates: end: 20120822
  30. AKINETON [Concomitant]
     Active Substance: BIPERIDEN HYDROCHLORIDE
     Dosage: 2 MG, UNK
     Route: 048
  31. AKINETON [Concomitant]
     Active Substance: BIPERIDEN HYDROCHLORIDE
     Dosage: 3 MG, UNK
     Route: 048
     Dates: end: 20120823
  32. LIMAS [Concomitant]
     Active Substance: LITHIUM CARBONATE
     Dosage: 400 MG, UNK
     Route: 048
  33. NORVASC [Concomitant]
     Active Substance: AMLODIPINE BESYLATE
     Indication: PRODUCT USED FOR UNKNOWN INDICATION
     Dosage: 5 MG, UNK
     Route: 048
  34. FLUPHENAZINE [Concomitant]
     Active Substance: FLUPHENAZINE
     Indication: PRODUCT USED FOR UNKNOWN INDICATION
     Dosage: 15 MG, QD
     Route: 065
  35. CLOZARIL [Suspect]
     Active Substance: CLOZAPINE
     Indication: SCHIZOPHRENIA, DISORGANISED TYPE
     Dosage: 12.5 MG, UNK
     Route: 048
     Dates: start: 20110119, end: 20110119
  36. CLOZARIL [Suspect]
     Active Substance: CLOZAPINE
     Dosage: 50 MG, UNK
     Route: 048
     Dates: start: 20110123, end: 20110125
  37. CLOZARIL [Suspect]
     Active Substance: CLOZAPINE
     Dosage: 200 MG, UNK
     Route: 048
     Dates: start: 20110323
  38. CLOZARIL [Suspect]
     Active Substance: CLOZAPINE
     Dosage: 400 MG, UNK
     Route: 048
     Dates: start: 20120119, end: 20120221
  39. CLOZARIL [Suspect]
     Active Substance: CLOZAPINE
     Dosage: 425 MG, UNK
     Route: 048
     Dates: start: 20120523, end: 20120529
  40. AKINETON [Concomitant]
     Active Substance: BIPERIDEN HYDROCHLORIDE
     Dosage: 4 MG, UNK
     Route: 048
  41. LIMAS [Concomitant]
     Active Substance: LITHIUM CARBONATE
     Dosage: 500 MG, UNK
     Route: 048
  42. LIMAS [Concomitant]
     Active Substance: LITHIUM CARBONATE
     Dosage: 500 MG, UNK
     Route: 048
  43. ROZEREM [Concomitant]
     Active Substance: RAMELTEON
     Indication: SCHIZOPHRENIA, DISORGANISED TYPE
     Dosage: 8 MG, UNK
     Route: 048
     Dates: start: 20110119

REACTIONS (16)
  - Abdominal pain [Unknown]
  - Pneumatosis intestinalis [Recovered/Resolved]
  - Shock [Unknown]
  - Bradykinesia [Unknown]
  - Haemoglobin decreased [Unknown]
  - Blood pressure diastolic decreased [Unknown]
  - Gastrointestinal perforation [Recovered/Resolved]
  - Sedation [Not Recovered/Not Resolved]
  - Glycosylated haemoglobin increased [Recovering/Resolving]
  - Diverticulitis Meckel^s [Recovered/Resolved]
  - Constipation [Not Recovered/Not Resolved]
  - Ileus [Unknown]
  - Subileus [Recovered/Resolved]
  - Abdominal distension [Unknown]
  - Vomiting [Unknown]
  - Blood pressure increased [Unknown]

NARRATIVE: CASE EVENT DATE: 20110215
